FAERS Safety Report 6665772-4 (Version None)
Quarter: 2010Q1

REPORT INFORMATION
  Report Type: 
  Country: None (occurrence: None)
  Receive Date: 20100325
  Receipt Date: 20100106
  Transmission Date: 20100710
  Serious: No
  Sender: FDA-Public Use
  Company Number: 2010-00019

PATIENT
  Age: 53 Year
  Sex: Female
  Weight: 56.6996 kg

DRUGS (1)
  1. COLD REMEDY NASAL GEL [Suspect]
     Dosage: QD - 2 DAYS 3 WKS AGO - AFTER 2 DAYS

REACTIONS (2)
  - AGEUSIA [None]
  - ANOSMIA [None]
